FAERS Safety Report 11358331 (Version 1)
Quarter: 2015Q3

REPORT INFORMATION
  Report Type: Spontaneous
  Country: US (occurrence: US)
  Receive Date: 20150803
  Receipt Date: 20150803
  Transmission Date: 20151125
  Serious: No
  Sender: FDA-Public Use
  Company Number: US-ELI_LILLY_AND_COMPANY-US200804004756

PATIENT
  Sex: Male
  Weight: 29.48 kg

DRUGS (1)
  1. STRATTERA [Suspect]
     Active Substance: ATOMOXETINE HYDROCHLORIDE
     Dosage: 40 MG, DAILY (1/D)
     Dates: start: 200704, end: 20080317

REACTIONS (3)
  - Disturbance in attention [Unknown]
  - Anxiety [Not Recovered/Not Resolved]
  - Therapeutic response decreased [Unknown]
